FAERS Safety Report 4745728-9 (Version None)
Quarter: 2005Q3

REPORT INFORMATION
  Report Type: 
  Country: None (occurrence: None)
  Receive Date: 20050811
  Receipt Date: 20050729
  Transmission Date: 20060218
  Serious: Yes (Hospitalization)
  Sender: FDA-Public Use
  Company Number: DEU-2005-0001603

PATIENT
  Age: 81 Year
  Sex: Male

DRUGS (9)
  1. OXY CR TAB 10 MG (OXY CR TAB 10 MG ) (OXYCODONE HYDROCHLORIDE) CR TABL [Suspect]
     Indication: CANCER PAIN
     Dosage: 10 MG, BID, ORAL
     Route: 048
     Dates: start: 20050512
  2. TRAMADOL HCL [Concomitant]
  3. DIPYRONE INJ [Concomitant]
  4. ASPIRIN [Concomitant]
  5. METOPROLOL SUCCINATE [Concomitant]
  6. NEPHROTRANS (SODIUM BICARBONATE) [Concomitant]
  7. RAMIPRIL [Concomitant]
  8. MOLSIDOMINE (MOLSIDOMINE) [Concomitant]
  9. METOCLOPRAMIDE [Concomitant]

REACTIONS (1)
  - MYOCARDIAL INFARCTION [None]
